FAERS Safety Report 9411508 (Version 1)
Quarter: 2013Q3

REPORT INFORMATION
  Report Type: Spontaneous
  Country: US (occurrence: None)
  Receive Date: 20130718
  Receipt Date: 20130718
  Transmission Date: 20140515
  Serious: Yes (Other)
  Sender: FDA-Public Use
  Company Number: None

PATIENT
  Age: 33 Year
  Sex: Female
  Weight: 52.62 kg

DRUGS (6)
  1. PROGESTERONE [Suspect]
     Dosage: 2CC
     Route: 030
     Dates: end: 20130617
  2. BRAVELLE [Concomitant]
  3. MENOPLER [Concomitant]
  4. HCG [Concomitant]
  5. CETROTIDE [Concomitant]
  6. ENDOMETRIN [Concomitant]

REACTIONS (1)
  - Injection site urticaria [None]
